FAERS Safety Report 26016428 (Version 1)
Quarter: 2025Q4

REPORT INFORMATION
  Report Type: Spontaneous
  Country: GB (occurrence: GB)
  Receive Date: 20251110
  Receipt Date: 20251110
  Transmission Date: 20260118
  Serious: Yes (Life-Threatening, Hospitalization, Other)
  Sender: TEVA
  Company Number: None

PATIENT
  Age: 61 Year
  Sex: Male
  Weight: 108 kg

DRUGS (6)
  1. LERCANIDIPINE [Suspect]
     Active Substance: LERCANIDIPINE
     Indication: Essential hypertension
     Dosage: IN THE MORNING
     Route: 065
     Dates: start: 20250903, end: 20251028
  2. SILDENAFIL [Concomitant]
     Active Substance: SILDENAFIL
     Indication: Erectile dysfunction
     Dates: start: 20250703
  3. NAPROXEN [Concomitant]
     Active Substance: NAPROXEN
     Indication: Product used for unknown indication
     Dates: start: 20251022
  4. LANSOPRAZOLE [Concomitant]
     Active Substance: LANSOPRAZOLE
     Indication: Product used for unknown indication
     Dates: start: 20251022
  5. RAMIPRIL [Suspect]
     Active Substance: RAMIPRIL
     Indication: Hypertension
     Route: 065
     Dates: start: 20241017, end: 20251028
  6. INDAPAMIDE [Suspect]
     Active Substance: INDAPAMIDE
     Indication: Essential hypertension
     Dosage: IN THE MORNING
     Route: 065
     Dates: start: 20251022, end: 20251028

REACTIONS (3)
  - Anaphylactic reaction [Recovering/Resolving]
  - Upper airway obstruction [Recovering/Resolving]
  - Angioedema [Recovering/Resolving]

NARRATIVE: CASE EVENT DATE: 20251028
